FAERS Safety Report 7298300-3 (Version None)
Quarter: 2011Q1

REPORT INFORMATION
  Report Type: 
  Country: None (occurrence: None)
  Receive Date: 20110217
  Receipt Date: 20100212
  Transmission Date: 20110831
  Serious: No
  Sender: FDA-Public Use
  Company Number: US-PFIZER INC-2009310922

PATIENT
  Age: 90 Year
  Sex: Female

DRUGS (2)
  1. LATANOPROST [Suspect]
  2. XALATAN [Suspect]
     Indication: GLAUCOMA

REACTIONS (1)
  - DEVICE INEFFECTIVE [None]
